FAERS Safety Report 20736098 (Version 1)
Quarter: 2022Q2

REPORT INFORMATION
  Report Type: Spontaneous
  Country: US (occurrence: None)
  Receive Date: 20220421
  Receipt Date: 20220421
  Transmission Date: 20220720
  Serious: Yes (Other)
  Sender: FDA-Public Use
  Company Number: None

PATIENT
  Age: 61 Year
  Sex: Female
  Weight: 64.86 kg

DRUGS (2)
  1. NERLYNX [Suspect]
     Active Substance: NERATINIB
     Indication: Breast cancer female
     Dosage: FREQUENCY : DAILY;?
     Route: 048
     Dates: start: 20211010, end: 20220209
  2. NERLYNX [Suspect]
     Active Substance: NERATINIB
     Dosage: FREQUENCY : DAILY;?
     Route: 048

REACTIONS (6)
  - Fatigue [None]
  - Diarrhoea [None]
  - Weight decreased [None]
  - Asthenia [None]
  - Nausea [None]
  - Vomiting [None]

NARRATIVE: CASE EVENT DATE: 20210111
